FAERS Safety Report 5752843-X (Version None)
Quarter: 2008Q2

REPORT INFORMATION
  Report Type: 
  Country: None (occurrence: None)
  Receive Date: 20080529
  Receipt Date: 20080519
  Transmission Date: 20081010
  Serious: Yes (Other)
  Sender: FDA-Public Use
  Company Number: AU-PFIZER INC-2008043270

PATIENT
  Age: 73 Year
  Sex: Male

DRUGS (1)
  1. LIPITOR [Suspect]

REACTIONS (6)
  - CONSTIPATION [None]
  - HYPOAESTHESIA [None]
  - MUSCLE SPASMS [None]
  - PERIPHERAL COLDNESS [None]
  - RENAL IMPAIRMENT [None]
  - SENSORY LOSS [None]
